FAERS Safety Report 8815241 (Version 1)
Quarter: 2012Q4

REPORT INFORMATION
  Report Type: 
  Country: US (occurrence: US)
  Receive Date: 20120928
  Receipt Date: 20120928
  Transmission Date: 20130627
  Serious: Yes (Other)
  Sender: FDA-Public Use
  Company Number: US-PERRIGO-12US008179

PATIENT
  Age: 76 Year
  Sex: Female
  Weight: 49.89 kg

DRUGS (1)
  1. TUSSIN [Suspect]
     Indication: PRODUCT USED FOR UNKNOWN INDICATION
     Dosage: 2 tsp; 2 gulps
     Route: 048
     Dates: start: 20120916, end: 20120917

REACTIONS (8)
  - Convulsion [Unknown]
  - Nausea [Unknown]
  - Photopsia [Unknown]
  - Diarrhoea [Unknown]
  - Fatigue [Unknown]
  - Malaise [Unknown]
  - Faeces discoloured [Unknown]
  - Incorrect dose administered [Unknown]
